APPROVED DRUG PRODUCT: CORTISONE ACETATE
Active Ingredient: CORTISONE ACETATE
Strength: 25MG
Dosage Form/Route: TABLET;ORAL
Application: A080776 | Product #002
Applicant: HIKMA INTERNATIONAL PHARMACEUTICALS LLC
Approved: Approved Prior to Jan 1, 1982 | RLD: No | RS: No | Type: DISCN